FAERS Safety Report 9365057 (Version 1)
Quarter: 2013Q2

REPORT INFORMATION
  Report Type: Spontaneous
  Country: AU (occurrence: AU)
  Receive Date: 20130624
  Receipt Date: 20130624
  Transmission Date: 20140414
  Serious: Yes (Hospitalization)
  Sender: FDA-Public Use
  Company Number: AU-PFIZER INC-2013186522

PATIENT
  Age: 77 Year
  Sex: Female

DRUGS (16)
  1. RAMIPRIL [Suspect]
     Dosage: 2.5 G, 1X/DAY
     Dates: end: 20130409
  2. PARACETAMOL [Suspect]
     Dosage: 4 G, 1X/DAY
     Dates: start: 20130407
  3. SIMVASTATIN [Suspect]
     Dosage: 20 MG, 1X/DAY
  4. LATANOPROST [Suspect]
     Dosage: UNK
  5. SPIRONOLACTONE [Suspect]
     Dosage: 12.5 MG, 1X/DAY
     Dates: end: 20130409
  6. TRIAMCINOLONE ACETONIDE [Suspect]
     Dosage: UNK
  7. METFORMIN HCL [Suspect]
     Dosage: 1 G, 1X/DAY
     Dates: end: 20130409
  8. PILOCARPINE HYDROCHLORIDE [Suspect]
     Dosage: UNK
  9. FRUSEMIDE [Suspect]
     Dosage: 120 MG, 1X/DAY
     Dates: end: 20130409
  10. COUMADIN [Suspect]
     Dosage: 6 MG, 1X/DAY
     Dates: end: 20130409
  11. FERROUS FUMARATE/FOLIC ACID [Suspect]
     Dosage: UNK
     Dates: end: 20130406
  12. FLUCLOXACILLIN SODIUM [Suspect]
     Dosage: 1000 MG, 1X/DAY
     Route: 042
     Dates: start: 20130402, end: 20130409
  13. ASPIRIN [Suspect]
     Dosage: 100 MG, 1X/DAY
     Dates: end: 20130409
  14. GLICLAZIDE [Suspect]
     Dosage: 30 MG, 1X/DAY
     Dates: end: 20130409
  15. OXYCODONE HYDROCHLORIDE [Suspect]
     Dosage: 20 MG, 1X/DAY
     Dates: start: 20130407
  16. SITAGLIPTIN PHOSPHATE [Suspect]
     Dosage: 50 G, 1X/DAY
     Dates: end: 20130409

REACTIONS (4)
  - Calciphylaxis [Not Recovered/Not Resolved]
  - Rectal haemorrhage [Not Recovered/Not Resolved]
  - Diabetic ulcer [Not Recovered/Not Resolved]
  - International normalised ratio increased [Not Recovered/Not Resolved]
